FAERS Safety Report 10467586 (Version 10)
Quarter: 2015Q2

REPORT INFORMATION
  Report Type: Spontaneous
  Country: US (occurrence: US)
  Receive Date: 20140922
  Receipt Date: 20150618
  Transmission Date: 20150821
  Serious: Yes (Death, Hospitalization, Other)
  Sender: FDA-Public Use
  Company Number: US-GLAXOSMITHKLINE-A1081512A

PATIENT
  Age: 67 Year
  Sex: Female

DRUGS (7)
  1. FLOLAN [Suspect]
     Active Substance: EPOPROSTENOL SODIUM
     Indication: COR PULMONALE CHRONIC
     Dosage: 6 NG/KG/MIN, 15,000 NG/ML, PUMP RATE 55 ML/DAY, VIAL STRENGTH 1.5 MG14.5 NG/KG/MIN, 30,000 NG/M[...]
     Route: 042
     Dates: start: 20140505
  2. FLOLAN [Suspect]
     Active Substance: EPOPROSTENOL SODIUM
     Dosage: 29 NG/KG/MIN
     Route: 042
  3. FLOLAN [Suspect]
     Active Substance: EPOPROSTENOL SODIUM
     Dosage: 29 NG/KG/MIN, CO
     Route: 042
  4. FLOLAN [Suspect]
     Active Substance: EPOPROSTENOL SODIUM
     Dosage: 29 NG/KG/MIN CONTINUOUS
     Route: 042
     Dates: start: 20140711
  5. FLOLAN [Suspect]
     Active Substance: EPOPROSTENOL SODIUM
     Indication: PULMONARY HYPERTENSION
     Dosage: UNK
     Dates: start: 20140505
  6. FLOLAN [Suspect]
     Active Substance: EPOPROSTENOL SODIUM
     Dosage: 29 NG/KG/MIN
  7. FLOLAN [Suspect]
     Active Substance: EPOPROSTENOL SODIUM
     Dosage: 29 NG/KG/MIN, CO
     Dates: start: 20140712

REACTIONS (21)
  - Pain in extremity [Unknown]
  - Cough [Unknown]
  - Application site pain [Unknown]
  - Pain [Unknown]
  - Epistaxis [Unknown]
  - Cardio-respiratory arrest [Unknown]
  - Headache [Unknown]
  - Emergency care examination [Unknown]
  - Diarrhoea [Unknown]
  - Unevaluable event [Unknown]
  - Pain in jaw [Unknown]
  - Skin irritation [Unknown]
  - Weight increased [Unknown]
  - Death [Fatal]
  - Drug administration error [Unknown]
  - Pneumonia [Unknown]
  - Erythema [Unknown]
  - Application site reaction [Unknown]
  - Swelling [Unknown]
  - Mouth haemorrhage [Unknown]
  - Catheter site related reaction [Unknown]

NARRATIVE: CASE EVENT DATE: 20140906
